FAERS Safety Report 8245491-3 (Version None)
Quarter: 2012Q1

REPORT INFORMATION
  Report Type: 
  Country: None (occurrence: None)
  Receive Date: 20120329
  Receipt Date: 20120326
  Transmission Date: 20120608
  Serious: Yes (Other)
  Sender: FDA-Public Use
  Company Number: US-ABBOTT-12P-163-0906482-00

PATIENT
  Sex: Male
  Weight: 77.18 kg

DRUGS (1)
  1. HUMIRA [Suspect]
     Indication: RHEUMATOID ARTHRITIS
     Route: 058
     Dates: start: 20111101

REACTIONS (4)
  - PULMONARY GRANULOMA [None]
  - RHEUMATOID NODULE [None]
  - COMPUTERISED TOMOGRAM ABNORMAL [None]
  - INTERSTITIAL LUNG DISEASE [None]
